FAERS Safety Report 5406091-3 (Version None)
Quarter: 2007Q3

REPORT INFORMATION
  Report Type: 
  Country: None (occurrence: None)
  Receive Date: 20070802
  Receipt Date: 20070802
  Transmission Date: 20080115
  Serious: Yes (Hospitalization)
  Sender: FDA-Public Use
  Company Number: None

PATIENT
  Sex: Female
  Weight: 65.318 kg

DRUGS (2)
  1. ZETIA [Suspect]
     Indication: HYPERLIPIDAEMIA
     Dosage: 10MG QD PO
     Route: 048
     Dates: start: 20070501, end: 20070717
  2. LESCOL XL [Suspect]
     Indication: HYPERLIPIDAEMIA
     Dosage: 80 MG QD PO
     Route: 048
     Dates: start: 20070501, end: 20070717

REACTIONS (1)
  - HEPATITIS ACUTE [None]
